FAERS Safety Report 4647036-3 (Version None)
Quarter: 2005Q2

REPORT INFORMATION
  Report Type: 
  Country: None (occurrence: None)
  Receive Date: 20050331
  Receipt Date: 20050203
  Transmission Date: 20051028
  Serious: No
  Sender: FDA-Public Use
  Company Number: 05P-163-0289445

PATIENT
  Age: 55 Year
  Sex: Female
  Weight: 60.782 kg

DRUGS (9)
  1. HUMIRA [Suspect]
     Indication: RHEUMATOID ARTHRITIS
     Dosage: 40 MG, 1 IN 2 WK, SUBCUTANEOUS
     Route: 058
     Dates: start: 20040101, end: 20050203
  2. CITRACAL + D [Concomitant]
  3. MULTI-VITAMINS [Concomitant]
  4. METHOTREXATE SODIUM [Concomitant]
  5. ALENDRONATE SODIUM [Concomitant]
  6. PYRIDOXINE HYDROCHLORIDE [Concomitant]
  7. HYDROCODONE BITARTRATE [Concomitant]
  8. ATENOLOL [Concomitant]
  9. VENLAFAXINE HCL [Concomitant]

REACTIONS (2)
  - SWELLING FACE [None]
  - SWOLLEN TONGUE [None]
